FAERS Safety Report 7823668-6 (Version None)
Quarter: 2011Q4

REPORT INFORMATION
  Report Type: 
  Country: None (occurrence: None)
  Receive Date: 20111019
  Receipt Date: 20111019
  Transmission Date: 20120403
  Serious: Yes (Other)
  Sender: FDA-Public Use
  Company Number: None

PATIENT
  Sex: Female
  Weight: 78.471 kg

DRUGS (3)
  1. FLUCONAZOLE [Suspect]
     Indication: FUNGAL INFECTION
     Dosage: 150 MG
     Route: 048
     Dates: start: 20110110, end: 20111016
  2. TETRACYCLINE [Concomitant]
     Indication: ABDOMINAL PAIN
     Dosage: 100 MG
     Route: 048
     Dates: start: 20110111, end: 20111016
  3. TETRACYCLINE [Concomitant]
     Indication: ACNE
     Dosage: 100 MG
     Route: 048
     Dates: start: 20110111, end: 20111016

REACTIONS (2)
  - LABORATORY TEST ABNORMAL [None]
  - NO THERAPEUTIC RESPONSE [None]
